FAERS Safety Report 7596936-3 (Version None)
Quarter: 2011Q3

REPORT INFORMATION
  Report Type: 
  Country: None (occurrence: None)
  Receive Date: 20110708
  Receipt Date: 20110629
  Transmission Date: 20111222
  Serious: Yes (Other)
  Sender: FDA-Public Use
  Company Number: DK-TEVA-288456ISR

PATIENT
  Sex: Female
  Weight: 46 kg

DRUGS (1)
  1. CITALOPRAM HYDROBROMIDE [Suspect]
     Indication: DEPRESSION
     Dosage: 20 MILLIGRAM; DOSE: 20 MG DAILY, STRENGTH 20 MG
     Route: 048
     Dates: start: 20061123

REACTIONS (2)
  - INTRA-UTERINE DEATH [None]
  - MATERNAL EXPOSURE DURING PREGNANCY [None]
